FAERS Safety Report 5605725-8 (Version None)
Quarter: 2008Q1

REPORT INFORMATION
  Report Type: 
  Country: None (occurrence: None)
  Receive Date: 20080129
  Receipt Date: 20080116
  Transmission Date: 20080703
  Serious: Yes (Life-Threatening, Hospitalization, Other)
  Sender: FDA-Public Use
  Company Number: SE-ELI_LILLY_AND_COMPANY-SE200712003919

PATIENT
  Age: 86 Year
  Sex: Female

DRUGS (2)
  1. FORTEO [Suspect]
     Indication: OSTEOPOROSIS
     Dosage: 20 UG/80ML
     Route: 065
     Dates: start: 20070301, end: 20071212
  2. KALCIPOS-D [Concomitant]
     Dosage: UNK UNK, 2/D
     Route: 065

REACTIONS (3)
  - CONFUSIONAL STATE [None]
  - HYPERCALCAEMIA [None]
  - SKIN ULCER [None]
